FAERS Safety Report 22958347 (Version 8)
Quarter: 2024Q2

REPORT INFORMATION
  Report Type: Report from Study
  Country: DE (occurrence: DE)
  Receive Date: 20230919
  Receipt Date: 20240513
  Transmission Date: 20240716
  Serious: Yes (Other)
  Sender: FDA-Public Use
  Company Number: DE-PFIZER INC-PV202300153694

PATIENT
  Age: 16 Year
  Sex: Male
  Weight: 86.9 kg

DRUGS (7)
  1. TOFACITINIB CITRATE [Suspect]
     Active Substance: TOFACITINIB CITRATE
     Indication: Still^s disease
     Dosage: 5 MG, 2X/DAY (BID)
     Route: 048
     Dates: start: 20220310
  2. METHOTREXATE SODIUM [Suspect]
     Active Substance: METHOTREXATE SODIUM
     Indication: Still^s disease
     Dosage: 10 MG, ONCE A WEEK
     Route: 058
     Dates: start: 20220905, end: 20230825
  3. METHYLPHENIDATE [Suspect]
     Active Substance: METHYLPHENIDATE
     Indication: Attention deficit hyperactivity disorder
     Dosage: 20 MG, DAILY
     Route: 048
     Dates: start: 20230204
  4. PREDNISOLONE [Concomitant]
     Active Substance: PREDNISOLONE
     Indication: Still^s disease
     Dosage: 5 MG, DAILY
     Route: 048
     Dates: start: 20230804, end: 20230913
  5. FOLIC ACID [Concomitant]
     Active Substance: FOLIC ACID
     Indication: Prophylaxis
     Dosage: 5 MG, ONCE A WEEK
     Route: 048
     Dates: start: 20220905, end: 20230825
  6. LEVOTHYROXINE SODIUM [Concomitant]
     Active Substance: LEVOTHYROXINE SODIUM
     Indication: Hypothyroidism
     Dosage: 50/150 MG, DAILY
     Route: 048
     Dates: start: 20221128
  7. AMOXICILLIN [Concomitant]
     Active Substance: AMOXICILLIN
     Indication: Respiratory tract infection
     Dosage: 1000 MG, THREE TIMES A DAY
     Route: 048
     Dates: start: 20230904, end: 20230907

REACTIONS (1)
  - Hepatic enzyme increased [Recovered/Resolved]

NARRATIVE: CASE EVENT DATE: 20230908
